FAERS Safety Report 8993078 (Version 1)
Quarter: 2013Q1

REPORT INFORMATION
  Report Type: Report from Study
  Country: BE (occurrence: BE)
  Receive Date: 20130102
  Receipt Date: 20130102
  Transmission Date: 20140127
  Serious: Yes (Death, Life-Threatening)
  Sender: FDA-Public Use
  Company Number: BE-ROCHE-1174834

PATIENT
  Age: 63 Year
  Sex: Female
  Weight: 90 kg

DRUGS (1)
  1. ALTEPLASE [Suspect]
     Indication: SUBARACHNOID HAEMORRHAGE
     Route: 065
     Dates: start: 19930610

REACTIONS (2)
  - Condition aggravated [Fatal]
  - Convulsion [Recovered/Resolved with Sequelae]
